FAERS Safety Report 6115293-2 (Version None)
Quarter: 2009Q1

REPORT INFORMATION
  Report Type: 
  Country: None (occurrence: None)
  Receive Date: 20090313
  Receipt Date: 20090304
  Transmission Date: 20090719
  Serious: Yes (Other)
  Sender: FDA-Public Use
  Company Number: BE-ASTRAZENECA-2009AC00756

PATIENT
  Sex: Female

DRUGS (1)
  1. NOLVADEX [Suspect]

REACTIONS (1)
  - ASPHYXIA [None]
